FAERS Safety Report 6837441-9 (Version None)
Quarter: 2010Q3

REPORT INFORMATION
  Report Type: 
  Country: None (occurrence: None)
  Receive Date: 20100713
  Receipt Date: 20070510
  Transmission Date: 20110219
  Serious: Yes (Other)
  Sender: FDA-Public Use
  Company Number: US-PFIZER INC-2007039039

PATIENT
  Sex: Male
  Weight: 129.3 kg

DRUGS (7)
  1. CHANTIX [Suspect]
     Indication: EX-TOBACCO USER
     Dates: start: 20070501
  2. VYTORIN [Concomitant]
     Indication: BLOOD CHOLESTEROL INCREASED
  3. WELLBUTRIN [Concomitant]
  4. FISH OIL [Concomitant]
  5. GLUCOSAMINE [Concomitant]
  6. ALL OTHER THERAPEUTIC PRODUCTS [Concomitant]
  7. MOTRIN [Concomitant]

REACTIONS (3)
  - ABNORMAL DREAMS [None]
  - DRY MOUTH [None]
  - MUSCLE SPASMS [None]
